FAERS Safety Report 4614291-5 (Version None)
Quarter: 2005Q1

REPORT INFORMATION
  Report Type: 
  Country: None (occurrence: None)
  Receive Date: 20050315
  Receipt Date: 20050308
  Transmission Date: 20050727
  Serious: Yes (Other)
  Sender: FDA-Public Use
  Company Number: 2005-02-0955

PATIENT
  Age: 76 Year
  Sex: Male
  Weight: 88.4514 kg

DRUGS (6)
  1. CLARITIN-D [Suspect]
     Indication: NASOPHARYNGITIS
     Dosage: 1 TAB QD ORAL
     Route: 048
     Dates: start: 20050124, end: 20050126
  2. ADVAIR (SALMETEROL/FLUTICASONE) [Concomitant]
  3. FLONASE [Concomitant]
  4. LIPITOR [Concomitant]
  5. MICARDIS [Concomitant]
  6. TUSSIONEX [Concomitant]

REACTIONS (2)
  - ATRIAL FIBRILLATION [None]
  - BLOOD PRESSURE INCREASED [None]
